FAERS Safety Report 4823743-4 (Version None)
Quarter: 2005Q4

REPORT INFORMATION
  Report Type: 
  Country: None (occurrence: None)
  Receive Date: 20051109
  Receipt Date: 20051101
  Transmission Date: 20060501
  Serious: Yes (Other)
  Sender: FDA-Public Use
  Company Number: US-ROCHE-423454

PATIENT
  Age: 54 Year
  Sex: Male
  Weight: 88.9 kg

DRUGS (7)
  1. PEG-INTERFERON ALFA 2A (RO 25-8310) [Suspect]
     Route: 058
     Dates: start: 20050930, end: 20051014
  2. RIBAVIRIN [Suspect]
     Route: 048
     Dates: start: 20050930, end: 20051017
  3. FLONASE [Concomitant]
     Indication: RHINITIS
  4. NEXIUM [Concomitant]
     Indication: DUODENAL ULCER
  5. XANAX [Concomitant]
     Indication: ANXIETY
     Dosage: THE PATIENT TOOK ALPRAZOLAM (XANAX) 0.5 MG AS NEEDED FROM 10 JULY 2005 TO AN UNSPECIFIED DATE AND 1+
  6. TYLENOL (CAPLET) [Concomitant]
     Indication: PROPHYLAXIS
     Dates: start: 20050930
  7. HYDROCHLOROTHIAZIDE/OLMESARTAN MEDOXOMIL [Concomitant]
     Indication: HYPERTENSION
     Dates: start: 20050615

REACTIONS (6)
  - ASTHENIA [None]
  - CHEST PAIN [None]
  - DEPRESSED LEVEL OF CONSCIOUSNESS [None]
  - HALLUCINATION [None]
  - SINUS TACHYCARDIA [None]
  - UNRESPONSIVE TO VERBAL STIMULI [None]
